FAERS Safety Report 12324462 (Version 1)
Quarter: 2016Q2

REPORT INFORMATION
  Report Type: Spontaneous
  Country: US (occurrence: US)
  Receive Date: 20160502
  Receipt Date: 20160502
  Transmission Date: 20160815
  Serious: No
  Sender: FDA-Public Use
  Company Number: US-ABBVIE-16P-163-1586502-00

PATIENT
  Age: 68 Year
  Sex: Male
  Weight: 90.8 kg

DRUGS (6)
  1. ANDROGEL [Suspect]
     Active Substance: TESTOSTERONE
     Indication: BLOOD TESTOSTERONE DECREASED
     Route: 061
     Dates: start: 201602
  2. ANDROGEL [Suspect]
     Active Substance: TESTOSTERONE
     Indication: PITUITARY TUMOUR
  3. HUMAN GROWTH HORMONE, RECOMBINANT [Concomitant]
     Active Substance: SOMATROPIN
     Indication: PITUITARY TUMOUR
  4. ANDROGEL [Suspect]
     Active Substance: TESTOSTERONE
     Indication: BLOOD TESTOSTERONE DECREASED
     Route: 061
     Dates: start: 2000, end: 201506
  5. LOVASTATIN. [Concomitant]
     Active Substance: LOVASTATIN
     Indication: BLOOD CHOLESTEROL
  6. ANDROGEL [Suspect]
     Active Substance: TESTOSTERONE
     Indication: PITUITARY TUMOUR

REACTIONS (4)
  - Blood testosterone decreased [Not Recovered/Not Resolved]
  - Dermal absorption impaired [Not Recovered/Not Resolved]
  - Prostatic specific antigen increased [Recovering/Resolving]
  - Wrong technique in product usage process [Unknown]

NARRATIVE: CASE EVENT DATE: 201506
